FAERS Safety Report 6141629-2 (Version None)
Quarter: 2009Q2

REPORT INFORMATION
  Report Type: 
  Country: None (occurrence: None)
  Receive Date: 20090402
  Receipt Date: 20090324
  Transmission Date: 20091009
  Serious: Yes (Other)
  Sender: FDA-Public Use
  Company Number: B0565894A

PATIENT
  Sex: Male

DRUGS (1)
  1. PAXIL [Suspect]
     Indication: DEPRESSION
     Route: 048

REACTIONS (6)
  - AGGRESSION [None]
  - AGITATION [None]
  - ANGER [None]
  - ILL-DEFINED DISORDER [None]
  - IMPULSIVE BEHAVIOUR [None]
  - MOOD ALTERED [None]
